FAERS Safety Report 7769974-5 (Version None)
Quarter: 2011Q3

REPORT INFORMATION
  Report Type: 
  Country: None (occurrence: None)
  Receive Date: 20110922
  Receipt Date: 20110912
  Transmission Date: 20111222
  Serious: Yes (Other)
  Sender: FDA-Public Use
  Company Number: FR-GLAXOSMITHKLINE-B0749212A

PATIENT
  Age: 45 Year
  Sex: Female

DRUGS (3)
  1. PACLITAXEL [Concomitant]
     Indication: OVARIAN CANCER
  2. PAZOPANIB [Suspect]
     Indication: OVARIAN CANCER
     Dosage: 800MG PER DAY
     Route: 065
  3. CARBOPLATIN [Concomitant]
     Indication: OVARIAN CANCER

REACTIONS (5)
  - ULCER [None]
  - ILL-DEFINED DISORDER [None]
  - PROCTALGIA [None]
  - ANASTOMOTIC LEAK [None]
  - PYREXIA [None]
